FAERS Safety Report 5840130-0 (Version None)
Quarter: 2008Q3

REPORT INFORMATION
  Report Type: 
  Country: None (occurrence: None)
  Receive Date: 20080807
  Receipt Date: 20080807
  Transmission Date: 20090109
  Serious: Yes (Hospitalization)
  Sender: FDA-Public Use
  Company Number: None

PATIENT
  Age: 46 Year
  Sex: Male

DRUGS (10)
  1. CLOZAPINE [Suspect]
     Indication: SCHIZOPHRENIA, PARANOID TYPE
     Dosage: 400MG AM + 200MG HS
     Dates: start: 20080702
  2. LIPITOR [Concomitant]
  3. COGENTIN [Concomitant]
  4. KLONOPIN [Concomitant]
  5. CYMBALTA [Concomitant]
  6. PROTONIX [Concomitant]
  7. RISPERDAL [Concomitant]
  8. COLACE [Concomitant]
  9. BENEFIBER [Concomitant]
  10. MIRALAX [Concomitant]

REACTIONS (1)
  - INTESTINAL OBSTRUCTION [None]
